FAERS Safety Report 5457618-7 (Version None)
Quarter: 2007Q3

REPORT INFORMATION
  Report Type: 
  Country: None (occurrence: None)
  Receive Date: 20070918
  Receipt Date: 20070906
  Transmission Date: 20080115
  Serious: No
  Sender: FDA-Public Use
  Company Number: US-BOEHRINGER INGELHEIM PHARMACEUTICALS, INC.-2007-BP-19599BP

PATIENT
  Sex: Male

DRUGS (8)
  1. SPIRIVA [Suspect]
     Indication: CHRONIC OBSTRUCTIVE PULMONARY DISEASE
     Dates: start: 20040625
  2. SPIRIVA [Suspect]
     Indication: DYSPNOEA
  3. FORADIL [Suspect]
     Dates: start: 20040125
  4. ZETIA [Concomitant]
  5. QUINAPRIL HCL [Concomitant]
  6. HYDROCHLOROTHIAZIDE [Concomitant]
  7. OXAPROZIN [Concomitant]
  8. ASPIRIN [Concomitant]

REACTIONS (1)
  - DRUG INEFFECTIVE [None]
